FAERS Safety Report 5929541-2 (Version None)
Quarter: 2008Q4

REPORT INFORMATION
  Report Type: 
  Country: None (occurrence: None)
  Receive Date: 20081024
  Receipt Date: 20081016
  Transmission Date: 20090506
  Serious: Yes (Hospitalization)
  Sender: FDA-Public Use
  Company Number: B0542086A

PATIENT
  Age: 51 Year
  Sex: Male

DRUGS (3)
  1. COMBIVIR [Suspect]
     Indication: HIV INFECTION
     Route: 048
     Dates: start: 20050722
  2. KALETRA [Suspect]
     Indication: HIV INFECTION
     Route: 048
     Dates: start: 20050722
  3. BACTRIM [Suspect]
     Indication: DRUG USE FOR UNKNOWN INDICATION
     Dosage: 400MG PER DAY
     Route: 048
     Dates: end: 20080701

REACTIONS (13)
  - DERMATITIS BULLOUS [None]
  - HEPATOCELLULAR INJURY [None]
  - HYPERTRICHOSIS [None]
  - LUNG NEOPLASM [None]
  - MELANODERMIA [None]
  - PORPHYRIA NON-ACUTE [None]
  - PORPHYRINS URINE INCREASED [None]
  - PRURIGO [None]
  - RASH PAPULAR [None]
  - SCAB [None]
  - SERUM FERRITIN INCREASED [None]
  - SKIN NECROSIS [None]
  - TRANSFERRIN SATURATION DECREASED [None]
